FAERS Safety Report 5489486-1 (Version None)
Quarter: 2007Q4

REPORT INFORMATION
  Report Type: 
  Country: None (occurrence: None)
  Receive Date: 20071018
  Receipt Date: 20070912
  Transmission Date: 20080405
  Serious: Yes (Other)
  Sender: FDA-Public Use
  Company Number: US-AVENTIS-200714580US

PATIENT
  Sex: Female
  Weight: 70 kg

DRUGS (25)
  1. LANTUS [Suspect]
     Route: 051
  2. OPTICLIK (INSULIN INJECTION PEN) [Suspect]
     Dates: start: 20061101
  3. RENAGEL                            /01459902/ [Concomitant]
     Dosage: DOSE: 800 2 WITH MEALS AND ONE WITH SNACKS
  4. PREVACID [Concomitant]
  5. SENSIPAR [Concomitant]
     Dosage: DOSE: 2 A DAY
  6. CALCITRIOL [Concomitant]
  7. AMITRIPTYLINE HCL [Concomitant]
  8. PRANDIN                            /01393601/ [Concomitant]
     Dosage: DOSE: 1 AT BREAKFAST
  9. PRANDIN                            /01393601/ [Concomitant]
     Dosage: DOSE: 2 AT LUNCH AND 2 AT DINNER
  10. LASIX [Concomitant]
  11. DETROL LA [Concomitant]
  12. AMLODIPINE BESYLATE AND BENAZEPRIL HCL [Concomitant]
     Dosage: DOSE: 10/20
  13. LEVOXYL [Concomitant]
  14. SIMVASTATIN [Concomitant]
  15. CLONIDINE HCL [Concomitant]
     Dosage: DOSE: 0.1 AM AND HS
  16. ATENOLOL [Concomitant]
  17. ASPIRIN [Concomitant]
  18. GLUCOSAMINE [Concomitant]
  19. NEPHROCAPS                         /01041101/ [Concomitant]
     Dosage: DOSE QUANTITY: 1
  20. SENOKOT [Concomitant]
     Dosage: DOSE QUANTITY: 1
  21. POLYETHYLENE GLYCOL 3350 POWDER FOR SOLUTION [Concomitant]
     Dosage: DOSE: NF POWDER FOR SOLUTION 1 TABLESPOON; DAILY DOSE UNIT: TABLESPOON
  22. STOOL SOFTENER [Concomitant]
     Dosage: DOSE QUANTITY: 1
  23. TEARS NATURALE FREE [Concomitant]
     Dosage: DOSE: UNK
     Route: 047
  24. EPO [Concomitant]
     Dosage: DOSE QUANTITY: 1
     Route: 051
  25. FUROSEMIDE [Concomitant]

REACTIONS (3)
  - BLOOD GLUCOSE INCREASED [None]
  - GLYCOSYLATED HAEMOGLOBIN INCREASED [None]
  - RENAL FAILURE [None]
